FAERS Safety Report 6165329-8 (Version None)
Quarter: 2009Q2

REPORT INFORMATION
  Report Type: 
  Country: None (occurrence: None)
  Receive Date: 20090421
  Receipt Date: 20090421
  Transmission Date: 20091009
  Serious: Yes (Death)
  Sender: FDA-Public Use
  Company Number: None

PATIENT
  Age: 75 Year
  Sex: Female

DRUGS (7)
  1. BORTEZOMIB 1.6 MG / M2 [Suspect]
     Indication: MULTIPLE MYELOMA
     Dosage: DAYS 1, 8, 15, 22Q35
     Dates: start: 20081117, end: 20090413
  2. CCI-779 15 MG [Suspect]
     Indication: MULTIPLE MYELOMA
     Dosage: DAYS 1, 8, 15, 22, 29Q35
     Dates: start: 20081117, end: 20090413
  3. LASIX [Concomitant]
  4. ALDACTONE [Concomitant]
  5. ACYCLOVIR [Concomitant]
  6. IRON [Concomitant]
  7. MAGNESIUM SULFATE [Concomitant]

REACTIONS (11)
  - ATRIAL FIBRILLATION [None]
  - CARDIAC AMYLOIDOSIS [None]
  - CARDIAC ARREST [None]
  - FALL [None]
  - HYPOTENSION [None]
  - MULTIPLE MYELOMA [None]
  - OEDEMA PERIPHERAL [None]
  - RESPIRATORY ARREST [None]
  - UNRESPONSIVE TO STIMULI [None]
  - VENTRICULAR FIBRILLATION [None]
  - VENTRICULAR TACHYCARDIA [None]
